FAERS Safety Report 26105999 (Version 1)
Quarter: 2025Q4

REPORT INFORMATION
  Report Type: Spontaneous
  Country: US (occurrence: US)
  Receive Date: 20251201
  Receipt Date: 20251201
  Transmission Date: 20260117
  Serious: No
  Sender: JOHNSON AND JOHNSON
  Company Number: US-JNJFOC-20251166742

PATIENT
  Sex: Female

DRUGS (2)
  1. TREMFYA [Suspect]
     Active Substance: GUSELKUMAB
     Indication: Colitis ulcerative
     Route: 065
  2. BUDESONIDE [Concomitant]
     Active Substance: BUDESONIDE
     Indication: Product used for unknown indication

REACTIONS (1)
  - Heavy menstrual bleeding [Not Recovered/Not Resolved]
